FAERS Safety Report 23813204 (Version 1)
Quarter: 2024Q2

REPORT INFORMATION
  Report Type: Spontaneous
  Country: ES (occurrence: ES)
  Receive Date: 20240503
  Receipt Date: 20240503
  Transmission Date: 20240716
  Serious: Yes (Other)
  Sender: FDA-Public Use
  Company Number: None

PATIENT
  Age: 50 Year
  Sex: Female

DRUGS (6)
  1. TRACLEER [Suspect]
     Active Substance: BOSENTAN
     Indication: Systemic scleroderma
     Route: 048
     Dates: start: 20191209, end: 20240220
  2. ASPIRIN [Concomitant]
     Active Substance: ASPIRIN
     Indication: Scleroderma
     Route: 048
     Dates: start: 20230904
  3. MYFORTIC [Concomitant]
     Active Substance: MYCOPHENOLATE SODIUM
     Indication: Scleroderma
     Route: 048
     Dates: start: 20230904
  4. CALCIO + VITAMINA D3 [Concomitant]
     Route: 048
     Dates: start: 20230904
  5. DOMPERIDONA PENSA [Concomitant]
     Route: 048
     Dates: start: 20230904
  6. LANSOPRAZOL SALVAT [Concomitant]
     Route: 048
     Dates: start: 20230904

REACTIONS (1)
  - Hepatocellular injury [Recovered/Resolved]

NARRATIVE: CASE EVENT DATE: 20240207
